FAERS Safety Report 5347291-0 (Version None)
Quarter: 2007Q2

REPORT INFORMATION
  Report Type: 
  Country: None (occurrence: None)
  Receive Date: 20070606
  Receipt Date: 20070530
  Transmission Date: 20071010
  Serious: Yes (Hospitalization)
  Sender: FDA-Public Use
  Company Number: PHRM2007FR01551

PATIENT
  Age: 73 Year
  Sex: Female

DRUGS (7)
  1. RIVOTRIL [Concomitant]
     Route: 048
  2. ZYPREXA [Concomitant]
     Dosage: 10 MG, QD
     Route: 048
  3. AMARYL [Suspect]
     Indication: DIABETES MELLITUS
     Dosage: 1 MG, QD
     Route: 048
     Dates: end: 20070205
  4. TAHOR [Suspect]
     Dosage: 1 DF, QD
     Route: 048
     Dates: end: 20070225
  5. LEVOTHYROXINE SODIUM [Concomitant]
     Dosage: 150 UG, QD
     Route: 048
     Dates: end: 20070205
  6. PARACETAMOL [Concomitant]
  7. COTAREG [Suspect]
     Indication: HYPERTENSION
     Dosage: 1 DF, QD
     Route: 048
     Dates: end: 20070206

REACTIONS (16)
  - ALANINE AMINOTRANSFERASE INCREASED [None]
  - ASPARTATE AMINOTRANSFERASE INCREASED [None]
  - BLOOD ALKALINE PHOSPHATASE INCREASED [None]
  - BLOOD CREATINE PHOSPHOKINASE INCREASED [None]
  - BLOOD CREATININE INCREASED [None]
  - BLOOD UREA INCREASED [None]
  - C-REACTIVE PROTEIN INCREASED [None]
  - CYTOLYTIC HEPATITIS [None]
  - DRUG TOXICITY [None]
  - GAMMA-GLUTAMYLTRANSFERASE INCREASED [None]
  - HYPERTHYROIDISM [None]
  - HYPOGLYCAEMIC COMA [None]
  - MALAISE [None]
  - METABOLIC ACIDOSIS [None]
  - OVERDOSE [None]
  - RHABDOMYOLYSIS [None]
